FAERS Safety Report 6725128-2 (Version None)
Quarter: 2010Q2

REPORT INFORMATION
  Report Type: 
  Country: None (occurrence: None)
  Receive Date: 20100514
  Receipt Date: 20100430
  Transmission Date: 20101027
  Serious: Yes (Other)
  Sender: FDA-Public Use
  Company Number: GB-RANBAXY-2010RR-33677

PATIENT
  Age: 82 Year
  Sex: Female

DRUGS (3)
  1. LORATADINE [Suspect]
  2. RAMIPRIL [Concomitant]
  3. THYROXIN [Concomitant]

REACTIONS (1)
  - LIP SWELLING [None]
